FAERS Safety Report 24006338 (Version 1)
Quarter: 2024Q2

REPORT INFORMATION
  Report Type: Spontaneous
  Country: HR (occurrence: HR)
  Receive Date: 20240624
  Receipt Date: 20240624
  Transmission Date: 20240715
  Serious: Yes (Death, Other)
  Sender: FDA-Public Use
  Company Number: HR-AMGEN-HRVSP2024121625

PATIENT

DRUGS (2)
  1. ROMIPLOSTIM [Suspect]
     Active Substance: ROMIPLOSTIM
     Indication: Thrombocytopenia
     Dosage: UNK (1-4) MCG/KG ONCE WEEK
     Route: 065
  2. ROMIPLOSTIM [Suspect]
     Active Substance: ROMIPLOSTIM
     Dosage: UNK (2-7) MCG/KG ONCE WEEK
     Route: 065

REACTIONS (6)
  - Death [Fatal]
  - Acute graft versus host disease [Unknown]
  - Chronic graft versus host disease [Unknown]
  - Therapy partial responder [Unknown]
  - Therapy non-responder [Unknown]
  - Off label use [Unknown]
